FAERS Safety Report 16647312 (Version 2)
Quarter: 2019Q3

REPORT INFORMATION
  Report Type: Spontaneous
  Country: US (occurrence: US)
  Receive Date: 20190730
  Receipt Date: 20190802
  Transmission Date: 20191004
  Serious: No
  Sender: FDA-Public Use
  Company Number: US-PFIZER INC-2019321064

PATIENT
  Age: 66 Year
  Sex: Female
  Weight: 124.7 kg

DRUGS (1)
  1. GABAPENTIN. [Suspect]
     Active Substance: GABAPENTIN
     Dosage: UNK

REACTIONS (4)
  - Homicidal ideation [Unknown]
  - Drug ineffective [Unknown]
  - Feeling drunk [Unknown]
  - Feeling abnormal [Unknown]
